FAERS Safety Report 6401220-7 (Version None)
Quarter: 2009Q4

REPORT INFORMATION
  Report Type: 
  Country: None (occurrence: None)
  Receive Date: 20091015
  Receipt Date: 20091008
  Transmission Date: 20100525
  Serious: Yes (Other)
  Sender: FDA-Public Use
  Company Number: AU-ROCHE-661274

PATIENT
  Sex: Female
  Weight: 65 kg

DRUGS (2)
  1. VALIUM [Suspect]
     Indication: DRUG USE FOR UNKNOWN INDICATION
     Route: 065
  2. ABILIFY [Suspect]
     Indication: DRUG USE FOR UNKNOWN INDICATION
     Dosage: FREQUENCY AND DOSE: 1 DOSE DAILY
     Route: 065
     Dates: start: 20090827, end: 20090901

REACTIONS (2)
  - ANGIOEDEMA [None]
  - DRUG ERUPTION [None]
